FAERS Safety Report 15130851 (Version 3)
Quarter: 2019Q4

REPORT INFORMATION
  Report Type: Report from Study
  Country: US (occurrence: US)
  Receive Date: 20180711
  Receipt Date: 20191230
  Transmission Date: 20200122
  Serious: Yes (Hospitalization, Other)
  Sender: FDA-Public Use
  Company Number: US-ACTELION-A-NJ2017-148285

PATIENT
  Age: 46 Year
  Sex: Female
  Weight: 72.11 kg

DRUGS (7)
  1. VELETRI [Suspect]
     Active Substance: EPOPROSTENOL
     Dosage: UNK
     Route: 042
     Dates: start: 2002
  2. COUMADIN [Concomitant]
     Active Substance: WARFARIN SODIUM
  3. FLOLAN [Concomitant]
     Active Substance: EPOPROSTENOL SODIUM
     Indication: PULMONARY ARTERIAL HYPERTENSION
     Dosage: UNK
     Dates: start: 2013
  4. VELETRI [Suspect]
     Active Substance: EPOPROSTENOL
     Dosage: 142 NG
     Route: 042
  5. VELETRI [Suspect]
     Active Substance: EPOPROSTENOL
     Dosage: 120 NG/KG, PER MIN
     Route: 042
     Dates: start: 20160906
  6. VELETRI [Suspect]
     Active Substance: EPOPROSTENOL
     Indication: PULMONARY ARTERIAL HYPERTENSION
     Dosage: 142 NG/KG, PER MIN
     Route: 042
  7. TRACLEER [Suspect]
     Active Substance: BOSENTAN
     Indication: PULMONARY ARTERIAL HYPERTENSION
     Dosage: 125 MCG, BID
     Route: 048
     Dates: start: 2002

REACTIONS (24)
  - Catheter site infection [Unknown]
  - Dyspnoea exertional [Not Recovered/Not Resolved]
  - Nasopharyngitis [Not Recovered/Not Resolved]
  - Abdominal pain [Unknown]
  - Influenza [Unknown]
  - Glucose tolerance test abnormal [Unknown]
  - Flushing [Not Recovered/Not Resolved]
  - Headache [Not Recovered/Not Resolved]
  - Nasal congestion [Unknown]
  - Diarrhoea [Recovering/Resolving]
  - Device leakage [Unknown]
  - Catheter site erythema [Unknown]
  - Catheter management [Recovered/Resolved]
  - Weight decreased [Unknown]
  - Cough [Unknown]
  - Pain in jaw [Not Recovered/Not Resolved]
  - Catheter site pain [Unknown]
  - Catheter site pruritus [Recovered/Resolved]
  - Palpitations [Not Recovered/Not Resolved]
  - Catheter site swelling [Unknown]
  - Sepsis [Unknown]
  - Upper respiratory tract infection [Unknown]
  - Device related thrombosis [Recovered/Resolved]
  - Urinary tract infection [Unknown]

NARRATIVE: CASE EVENT DATE: 20161229
